FAERS Safety Report 16448189 (Version 1)
Quarter: 2019Q2

REPORT INFORMATION
  Report Type: Spontaneous
  Country: JP (occurrence: JP)
  Receive Date: 20190619
  Receipt Date: 20190619
  Transmission Date: 20190711
  Serious: Yes (Hospitalization, Other)
  Sender: FDA-Public Use
  Company Number: JP-SUN PHARMACEUTICAL INDUSTRIES LTD-2019RR-210880

PATIENT
  Age: 75 Year
  Sex: Female
  Weight: 51.5 kg

DRUGS (7)
  1. MIRTAZAPINE. [Concomitant]
     Active Substance: MIRTAZAPINE
     Indication: PRODUCT USED FOR UNKNOWN INDICATION
     Dosage: 15 MILLIGRAM, 1 CPR
     Route: 065
  2. AMLODIPINE [Suspect]
     Active Substance: AMLODIPINE BESYLATE
     Indication: PRODUCT USED FOR UNKNOWN INDICATION
     Dosage: 5 MG 1 CPR
     Route: 065
  3. FLUNITRAZEPAM [Concomitant]
     Active Substance: FLUNITRAZEPAM
     Indication: PRODUCT USED FOR UNKNOWN INDICATION
     Dosage: 1 MILLIGRAM, 1 CPR
     Route: 065
  4. ATORVASTATIN CALCIUM. [Concomitant]
     Active Substance: ATORVASTATIN CALCIUM
     Indication: PRODUCT USED FOR UNKNOWN INDICATION
     Dosage: 10 MILLIGRAM, 1 CPR
     Route: 065
  5. WARFARIN [Concomitant]
     Active Substance: WARFARIN
     Indication: PRODUCT USED FOR UNKNOWN INDICATION
     Dosage: 1 MILLIGRAM, 2.5 CPR
     Route: 065
  6. SENNA EXTRACT [Concomitant]
     Indication: PRODUCT USED FOR UNKNOWN INDICATION
     Dosage: 2 CPR
     Route: 065
  7. ZOLPIDEM TARTRATE. [Concomitant]
     Active Substance: ZOLPIDEM TARTRATE
     Indication: PRODUCT USED FOR UNKNOWN INDICATION
     Dosage: 5 MILLIGRAM, 1 CPR BEFORE SLEEP
     Route: 065

REACTIONS (5)
  - Renal injury [Recovering/Resolving]
  - Hypotension [Unknown]
  - Overdose [Unknown]
  - Toxicity to various agents [Recovering/Resolving]
  - Hypokalaemia [Recovering/Resolving]
